FAERS Safety Report 16339836 (Version 1)
Quarter: 2019Q2

REPORT INFORMATION
  Report Type: Spontaneous
  Country: US (occurrence: US)
  Receive Date: 20190521
  Receipt Date: 20190521
  Transmission Date: 20190711
  Serious: No
  Sender: FDA-Public Use
  Company Number: US-IRONWOOD PHARMACEUTICALS, INC.-IRWD2019000305

PATIENT

DRUGS (2)
  1. DUZALLO [Suspect]
     Active Substance: ALLOPURINOL\LESINURAD
     Indication: PRODUCT USED FOR UNKNOWN INDICATION
     Dosage: UNK
     Route: 065
  2. ZURAMPIC [Suspect]
     Active Substance: LESINURAD
     Indication: PRODUCT USED FOR UNKNOWN INDICATION
     Dosage: UNK
     Route: 065

REACTIONS (2)
  - Adverse event [Unknown]
  - Gout [Unknown]
